FAERS Safety Report 20450161 (Version 1)
Quarter: 2022Q1

REPORT INFORMATION
  Report Type: Report from Study
  Country: FR (occurrence: None)
  Receive Date: 20220209
  Receipt Date: 20220209
  Transmission Date: 20220424
  Serious: Yes (Other)
  Sender: FDA-Public Use
  Company Number: FR-US-Provell Pharmaceuticals LLC-9296402

PATIENT
  Sex: Female

DRUGS (1)
  1. LEVOTHYROXINE [Suspect]
     Active Substance: LEVOTHYROXINE
     Indication: Product used for unknown indication

REACTIONS (12)
  - Parkinson^s disease [Unknown]
  - Cerebrovascular accident [Unknown]
  - Suicidal ideation [Unknown]
  - Depressed level of consciousness [Unknown]
  - Accident [Unknown]
  - Depression [Unknown]
  - Fall [Unknown]
  - Dizziness [Unknown]
  - Anxiety [Unknown]
  - Stress [Unknown]
  - Alopecia [Unknown]
  - Burning sensation [Unknown]

NARRATIVE: CASE EVENT DATE: 20170101
